FAERS Safety Report 5638014-6 (Version None)
Quarter: 2008Q1

REPORT INFORMATION
  Report Type: 
  Country: None (occurrence: None)
  Receive Date: 20080226
  Receipt Date: 20080215
  Transmission Date: 20080703
  Serious: Yes (Hospitalization)
  Sender: FDA-Public Use
  Company Number: US-JNJFOC-20080203705

PATIENT
  Sex: Female
  Weight: 106.6 kg

DRUGS (12)
  1. FENTANYL TRANSDERMAL SYSTEM [Suspect]
     Route: 062
  2. FENTANYL TRANSDERMAL SYSTEM [Suspect]
     Indication: PSORIATIC ARTHROPATHY
     Route: 062
  3. HUMIRA [Concomitant]
     Indication: PSORIATIC ARTHROPATHY
     Route: 030
  4. TRILEPTAL [Concomitant]
     Indication: CONVULSION
     Route: 048
  5. ZYRTEC-D [Concomitant]
     Indication: HYPERSENSITIVITY
     Route: 048
  6. CELEBREX [Concomitant]
     Route: 048
  7. FOLIC ACID [Concomitant]
     Route: 048
  8. METHOTREXATE [Concomitant]
     Route: 048
  9. LEVOXYL [Concomitant]
     Indication: HYPOTHYROIDISM
     Route: 048
  10. DIOVAN [Concomitant]
     Indication: HYPERTENSION
     Route: 048
  11. BACLOFEN [Concomitant]
     Indication: PSORIATIC ARTHROPATHY
     Route: 048
  12. AMBIEN CR [Concomitant]
     Indication: SLEEP DISORDER THERAPY
     Route: 048

REACTIONS (3)
  - BREAST ABSCESS [None]
  - INITIAL INSOMNIA [None]
  - TREATMENT NONCOMPLIANCE [None]
